FAERS Safety Report 7514176-0 (Version None)
Quarter: 2011Q2

REPORT INFORMATION
  Report Type: 
  Country: None (occurrence: None)
  Receive Date: 20110531
  Receipt Date: 20110523
  Transmission Date: 20111010
  Serious: Yes (Other)
  Sender: FDA-Public Use
  Company Number: BR-PFIZER INC-2011104553

PATIENT
  Age: 59 Year
  Sex: Female

DRUGS (2)
  1. CORTISONE [Concomitant]
     Indication: RHEUMATOID ARTHRITIS
     Dosage: UNK
  2. XALATAN [Suspect]
     Indication: GLAUCOMA
     Dosage: 3 UG, 1X/DAY
     Route: 047

REACTIONS (9)
  - EYELID OEDEMA [None]
  - EYE PAIN [None]
  - OCULAR HYPERAEMIA [None]
  - EYE IRRITATION [None]
  - EYE DISORDER [None]
  - SWELLING FACE [None]
  - CORRECTIVE LENS USER [None]
  - LACRIMATION INCREASED [None]
  - EYE INFLAMMATION [None]
